FAERS Safety Report 8760566 (Version 2)
Quarter: 2012Q4

REPORT INFORMATION
  Report Type: Spontaneous
  Country: FR (occurrence: None)
  Receive Date: 20120820
  Receipt Date: 20121106
  Transmission Date: 20130627
  Serious: Yes (Death, Hospitalization)
  Sender: FDA-Public Use
  Company Number: 2012033103

PATIENT
  Age: 25 Year
  Sex: Female

DRUGS (20)
  1. PRIVIGEN (IMMUNE GLOBULIN INTRAVENOUS (HUMAN) 10% LIQUID) [Suspect]
     Indication: GRAFT REJECTION
     Dates: start: 20120111, end: 20120124
  2. PRIVIGEN (IMMUNE GLOBULIN INTRAVENOUS (HUMAN) 10% LIQUID) [Suspect]
     Indication: GRAFT REJECTION
  3. TARGOCID [Suspect]
     Indication: INFECTION PROPHYLAXIS
     Dates: start: 201201, end: 20120123
  4. NEORAL [Suspect]
     Indication: LUNG TRANSPLANT REJECTION
     Dates: start: 200911, end: 20120123
  5. ZITHROMAX (AZITHROMYCIN) [Concomitant]
  6. BONIVA (IBANDRONIC ACID) [Concomitant]
  7. UVEDOSE (COLECALCIFEROL) [Concomitant]
  8. URSOLVAN-200 (URSODEOXYCHOLIC ACID) [Concomitant]
  9. PANKREATIN (PANCREATIN) [Concomitant]
  10. TENORMINE (ATENOLOL) [Concomitant]
  11. FLECAINE (FLECAINIDE ACETATE) [Concomitant]
  12. PROPYLTHIOURACIL(PROPYLTHIOURACIL) [Concomitant]
  13. LUTERAN (CHLORMADINONE ACETATE) [Concomitant]
  14. ANTIHISTAMINES(ANTIHISTAMINES) [Concomitant]
  15. SOLUTIONS FOR PARENTERAL NUTRITION(SOLUTIONS FOR PARENTERAL NUTRITION) [Concomitant]
  16. CEFTAZIDIME(CEFTAZIDIME) [Concomitant]
  17. CIPROFLOXACIN(CIPROFLOXACIN) [Concomitant]
  18. LANTUS (INSULIN GLARGINE) [Concomitant]
  19. VENOFER (SACCHARATED IRON OXIDE) [Concomitant]
  20. NEORECORMON (EPOETIN BETA) [Concomitant]

REACTIONS (6)
  - Renal impairment [None]
  - Toxicity to various agents [None]
  - Pulmonary oedema [None]
  - Renal failure acute [None]
  - Respiratory distress [None]
  - Respiratory failure [None]
